FAERS Safety Report 23828022 (Version 3)
Quarter: 2024Q2

REPORT INFORMATION
  Report Type: Spontaneous
  Country: DE (occurrence: DE)
  Receive Date: 20240507
  Receipt Date: 20240614
  Transmission Date: 20240716
  Serious: Yes (Hospitalization)
  Sender: FDA-Public Use
  Company Number: DE-ROCHE-3534454

PATIENT
  Age: 59 Year
  Sex: Female
  Weight: 67 kg

DRUGS (65)
  1. CYCLOPHOSPHAMIDE [Suspect]
     Active Substance: CYCLOPHOSPHAMIDE
     Indication: Diffuse large B-cell lymphoma
     Dosage: 1320 MG, TIW (START DATE OF MOST RECENT DOSE OF STUDY DRUG PRIOR TO AE: 20-MAR-2024)
     Route: 042
     Dates: start: 20240320
  2. DOXORUBICIN [Suspect]
     Active Substance: DOXORUBICIN
     Indication: Diffuse large B-cell lymphoma
     Dosage: 88 MG, TIW (START DATE OF MOST RECENT DOSE OF STUDY DRUG PRIOR TO AE: 20/MAR/2024)
     Route: 042
     Dates: start: 20240320
  3. PREDNISONE [Suspect]
     Active Substance: PREDNISONE
     Indication: Diffuse large B-cell lymphoma
     Dosage: 100 MG, TIW (START DATE OF MOST RECENT DOSE OF STUDY DRUG PRIOR TO AE: 24/MAR/2024)
     Route: 048
     Dates: start: 20240320
  4. ACYCLOVIR [Concomitant]
     Active Substance: ACYCLOVIR
     Indication: Product used for unknown indication
     Dosage: 800.000MG
     Route: 065
     Dates: start: 20240320
  5. ACYCLOVIR [Concomitant]
     Active Substance: ACYCLOVIR
     Dosage: 800.000MG
     Route: 065
     Dates: start: 20240320
  6. ACYCLOVIR [Concomitant]
     Active Substance: ACYCLOVIR
     Dosage: 800.000MG
     Route: 065
     Dates: start: 20240320
  7. ACYCLOVIR [Concomitant]
     Active Substance: ACYCLOVIR
     Dosage: 800.000MG
     Route: 065
     Dates: start: 20240320
  8. ACYCLOVIR [Concomitant]
     Active Substance: ACYCLOVIR
     Dosage: 800.000MG
     Route: 065
     Dates: start: 20240320
  9. AMLODIPINE BESYLATE [Concomitant]
     Active Substance: AMLODIPINE BESYLATE
     Indication: Product used for unknown indication
     Dosage: 10.000MG QD
     Route: 065
     Dates: start: 20240319
  10. SULFAMETHOXAZOLE\TRIMETHOPRIM [Concomitant]
     Active Substance: SULFAMETHOXAZOLE\TRIMETHOPRIM
     Indication: Product used for unknown indication
     Dosage: 480.000MG
     Route: 065
     Dates: start: 20240321
  11. SULFAMETHOXAZOLE\TRIMETHOPRIM [Concomitant]
     Active Substance: SULFAMETHOXAZOLE\TRIMETHOPRIM
     Dosage: 480.000MG
     Route: 065
     Dates: start: 20240321
  12. SULFAMETHOXAZOLE\TRIMETHOPRIM [Concomitant]
     Active Substance: SULFAMETHOXAZOLE\TRIMETHOPRIM
     Dosage: 480.000MG
     Route: 065
     Dates: start: 20240321
  13. SULFAMETHOXAZOLE\TRIMETHOPRIM [Concomitant]
     Active Substance: SULFAMETHOXAZOLE\TRIMETHOPRIM
     Dosage: 480.000MG
     Route: 065
     Dates: start: 20240321
  14. SULFAMETHOXAZOLE\TRIMETHOPRIM [Concomitant]
     Active Substance: SULFAMETHOXAZOLE\TRIMETHOPRIM
     Dosage: 480.000MG
     Route: 065
     Dates: start: 20240321
  15. FEBUXOSTAT [Concomitant]
     Active Substance: FEBUXOSTAT
     Indication: Gout
     Dosage: 80.000MG QD
     Route: 065
     Dates: start: 20240322
  16. FEBUXOSTAT [Concomitant]
     Active Substance: FEBUXOSTAT
     Indication: Hyperuricaemia
     Dosage: 80.000MG QD
     Route: 065
     Dates: start: 20240322
  17. FEBUXOSTAT [Concomitant]
     Active Substance: FEBUXOSTAT
     Indication: Product used for unknown indication
     Dosage: 80.000MG QD
     Route: 065
     Dates: start: 20240322
  18. FEBUXOSTAT [Concomitant]
     Active Substance: FEBUXOSTAT
     Dosage: 80.000MG QD
     Route: 065
     Dates: start: 20240322
  19. FEBUXOSTAT [Concomitant]
     Active Substance: FEBUXOSTAT
     Dosage: 80.000MG QD
     Route: 065
     Dates: start: 20240322
  20. HYDROCHLOROTHIAZIDE [Concomitant]
     Active Substance: HYDROCHLOROTHIAZIDE
     Indication: Hypertension
     Dosage: 12.500MG QD
     Route: 065
     Dates: start: 20240322
  21. HYDROCHLOROTHIAZIDE [Concomitant]
     Active Substance: HYDROCHLOROTHIAZIDE
     Dosage: 12.500MG QD
     Route: 065
     Dates: start: 20240322
  22. HYDROCHLOROTHIAZIDE [Concomitant]
     Active Substance: HYDROCHLOROTHIAZIDE
     Dosage: 12.500MG QD
     Route: 065
     Dates: start: 20240322
  23. HYDROCHLOROTHIAZIDE [Concomitant]
     Active Substance: HYDROCHLOROTHIAZIDE
     Dosage: 12.500MG QD
     Route: 065
     Dates: start: 20240322
  24. HYDROCHLOROTHIAZIDE [Concomitant]
     Active Substance: HYDROCHLOROTHIAZIDE
     Indication: Product used for unknown indication
     Dosage: QD
     Route: 065
     Dates: start: 20240322
  25. LEVOTHYROXINE [Concomitant]
     Active Substance: LEVOTHYROXINE\LEVOTHYROXINE SODIUM
     Indication: Hypothyroidism
     Dosage: 100.000UG QD
     Route: 065
     Dates: start: 20240315
  26. LEVOTHYROXINE [Concomitant]
     Active Substance: LEVOTHYROXINE\LEVOTHYROXINE SODIUM
     Indication: Product used for unknown indication
     Dosage: 100.000UG QD
     Route: 065
     Dates: start: 20240315
  27. LEVOTHYROXINE [Concomitant]
     Active Substance: LEVOTHYROXINE\LEVOTHYROXINE SODIUM
     Dosage: 100.000UG QD
     Route: 065
     Dates: start: 20240315
  28. LEVOTHYROXINE [Concomitant]
     Active Substance: LEVOTHYROXINE\LEVOTHYROXINE SODIUM
     Dosage: 100.000UG QD
     Route: 065
     Dates: start: 20240315
  29. LEVOTHYROXINE [Concomitant]
     Active Substance: LEVOTHYROXINE\LEVOTHYROXINE SODIUM
     Dosage: 100.000UG QD
     Route: 065
     Dates: start: 20240315
  30. METOPROLOL [Concomitant]
     Active Substance: METOPROLOL
     Indication: Hypertension
     Dosage: 47.500MG QD
     Route: 065
     Dates: start: 20240315
  31. METOPROLOL [Concomitant]
     Active Substance: METOPROLOL
     Indication: Product used for unknown indication
     Dosage: 47.500MG QD
     Route: 065
     Dates: start: 20240315
  32. METOPROLOL [Concomitant]
     Active Substance: METOPROLOL
     Dosage: 47.500MG QD
     Route: 065
     Dates: start: 20240315
  33. METOPROLOL [Concomitant]
     Active Substance: METOPROLOL
     Dosage: 47.500MG QD
     Route: 065
     Dates: start: 20240315
  34. METOPROLOL [Concomitant]
     Active Substance: METOPROLOL
     Dosage: 47.500MG QD
     Route: 065
     Dates: start: 20240315
  35. MOXONIDINE [Concomitant]
     Active Substance: MOXONIDINE
     Indication: Hypertension
     Dosage: 0.400MG
     Route: 065
     Dates: start: 20240315
  36. MOXONIDINE [Concomitant]
     Active Substance: MOXONIDINE
     Indication: Product used for unknown indication
     Dosage: 0.400MG
     Route: 065
     Dates: start: 20240315
  37. MOXONIDINE [Concomitant]
     Active Substance: MOXONIDINE
     Dosage: 0.400MG
     Route: 065
     Dates: start: 20240315
  38. MOXONIDINE [Concomitant]
     Active Substance: MOXONIDINE
     Dosage: 0.400MG
     Route: 065
     Dates: start: 20240315
  39. MOXONIDINE [Concomitant]
     Active Substance: MOXONIDINE
     Dosage: 0.400MG
     Route: 065
     Dates: start: 20240315
  40. POLATUZUMAB VEDOTIN [Concomitant]
     Active Substance: POLATUZUMAB VEDOTIN
     Dosage: START DATE OF MOST RECENT DOSE OF STUDY DRUG PRIOR TO AE: 21-MAR-2024
     Route: 065
     Dates: start: 20240321
  41. POLATUZUMAB VEDOTIN [Concomitant]
     Active Substance: POLATUZUMAB VEDOTIN
     Dosage: START DATE OF MOST RECENT DOSE OF STUDY DRUG PRIOR TO AE: 21-MAR-2024
     Route: 065
     Dates: start: 20240321
  42. POLATUZUMAB VEDOTIN [Concomitant]
     Active Substance: POLATUZUMAB VEDOTIN
     Indication: Diffuse large B-cell lymphoma
     Dosage: 122.400MG TIW
     Route: 065
     Dates: start: 20240321
  43. POLATUZUMAB VEDOTIN [Concomitant]
     Active Substance: POLATUZUMAB VEDOTIN
     Dosage: 122.400MG TIW
     Route: 065
     Dates: start: 20240321
  44. POLATUZUMAB VEDOTIN [Concomitant]
     Active Substance: POLATUZUMAB VEDOTIN
     Dosage: 122.400MG TIW
     Route: 065
     Dates: start: 20240321
  45. POTASSIUM CHLORIDE [Concomitant]
     Active Substance: POTASSIUM CHLORIDE
     Indication: Product used for unknown indication
     Dosage: 3600.000MG QD
     Route: 065
     Dates: start: 20240315
  46. POTASSIUM CHLORIDE [Concomitant]
     Active Substance: POTASSIUM CHLORIDE
     Dosage: 3600.000MG QD
     Route: 065
     Dates: start: 20240315
  47. POTASSIUM CHLORIDE [Concomitant]
     Active Substance: POTASSIUM CHLORIDE
     Dosage: 3600.000MG QD
     Route: 065
     Dates: start: 20240315
  48. POTASSIUM CHLORIDE [Concomitant]
     Active Substance: POTASSIUM CHLORIDE
     Dosage: 3600.000MG QD
     Route: 065
     Dates: start: 20240315
  49. POTASSIUM CHLORIDE [Concomitant]
     Active Substance: POTASSIUM CHLORIDE
     Dosage: 3600.000MG QD
     Route: 065
     Dates: start: 20240315
  50. PREDNISOLONE [Concomitant]
     Active Substance: PREDNISOLONE
     Indication: Product used for unknown indication
     Dosage: UNK
     Route: 065
     Dates: start: 20240307, end: 20240310
  51. RAMIPRIL [Concomitant]
     Active Substance: RAMIPRIL
     Indication: Hypertension
     Dosage: 10.000MG
     Route: 065
     Dates: start: 20240315
  52. RAMIPRIL [Concomitant]
     Active Substance: RAMIPRIL
     Indication: Product used for unknown indication
     Dosage: 10.000MG
     Route: 065
     Dates: start: 20240315
  53. RAMIPRIL [Concomitant]
     Active Substance: RAMIPRIL
     Dosage: 10.000MG
     Route: 065
     Dates: start: 20240315
  54. RAMIPRIL [Concomitant]
     Active Substance: RAMIPRIL
     Dosage: 10.000MG
     Route: 065
     Dates: start: 20240315
  55. RAMIPRIL [Concomitant]
     Active Substance: RAMIPRIL
     Dosage: 10.000MG
     Route: 065
     Dates: start: 20240315
  56. RITUXIMAB [Concomitant]
     Active Substance: RITUXIMAB
     Dosage: START DATE OF MOST RECENT DOSE OF STUDY DRUG PRIOR TO AE: 20-MAR-2024
     Route: 065
     Dates: start: 20240320
  57. RITUXIMAB [Concomitant]
     Active Substance: RITUXIMAB
     Dosage: START DATE OF MOST RECENT DOSE OF STUDY DRUG PRIOR TO AE: 20-MAR-2024
     Route: 065
     Dates: start: 20240320
  58. RITUXIMAB [Concomitant]
     Active Substance: RITUXIMAB
     Indication: Diffuse large B-cell lymphoma
     Dosage: 660 MG, TIW
     Route: 065
     Dates: start: 20240320
  59. RITUXIMAB [Concomitant]
     Active Substance: RITUXIMAB
     Dosage: 660 MG, TIW
     Route: 065
     Dates: start: 20240320
  60. RITUXIMAB [Concomitant]
     Active Substance: RITUXIMAB
     Dosage: 660 MG, TIW
     Route: 065
     Dates: start: 20240320
  61. SITAGLIPTIN [Concomitant]
     Active Substance: SITAGLIPTIN
     Indication: Product used for unknown indication
     Dosage: 50.000MG
     Route: 065
     Dates: start: 20240315
  62. SITAGLIPTIN [Concomitant]
     Active Substance: SITAGLIPTIN
     Dosage: 50.000MG
     Route: 065
     Dates: start: 20240315
  63. SITAGLIPTIN [Concomitant]
     Active Substance: SITAGLIPTIN
     Dosage: 50.000MG
     Route: 065
     Dates: start: 20240315
  64. SITAGLIPTIN [Concomitant]
     Active Substance: SITAGLIPTIN
     Dosage: 50.000MG
     Route: 065
     Dates: start: 20240315
  65. SITAGLIPTIN [Concomitant]
     Active Substance: SITAGLIPTIN
     Dosage: 50.000MG
     Route: 065
     Dates: start: 20240315

REACTIONS (2)
  - C-reactive protein increased [Not Recovered/Not Resolved]
  - Infection [Recovered/Resolved]

NARRATIVE: CASE EVENT DATE: 20240326
